FAERS Safety Report 7190664-4 (Version None)
Quarter: 2010Q4

REPORT INFORMATION
  Report Type: 
  Country: None (occurrence: None)
  Receive Date: 20101223
  Receipt Date: 20101222
  Transmission Date: 20110411
  Serious: Yes (Other)
  Sender: FDA-Public Use
  Company Number: US-RB-017232-10

PATIENT
  Age: 29 Year
  Sex: Male

DRUGS (1)
  1. MUCINEX DM [Suspect]
     Route: 048

REACTIONS (4)
  - ANXIETY [None]
  - FEELING ABNORMAL [None]
  - MYDRIASIS [None]
  - PARANOIA [None]
